FAERS Safety Report 8984562 (Version 1)
Quarter: 2012Q4

REPORT INFORMATION
  Report Type: Spontaneous
  Country: EC (occurrence: None)
  Receive Date: 20121214
  Receipt Date: 20121214
  Transmission Date: 20130627
  Serious: Yes (Hospitalization, Other)
  Sender: FDA-Public Use
  Company Number: ENTC2012-0558

PATIENT
  Age: 61 Year
  Sex: Male

DRUGS (1)
  1. STALEVO (LEVODOPA, CARBIDOPA, ENTACAPONE) [Suspect]
     Indication: PARKINSON^S DISEASE
     Route: 048
     Dates: start: 20120110, end: 201207

REACTIONS (5)
  - Stress [None]
  - Ischaemic stroke [None]
  - Hypothyroidism [None]
  - Balance disorder [None]
  - Disorientation [None]
